FAERS Safety Report 7004876-3 (Version None)
Quarter: 2010Q3

REPORT INFORMATION
  Report Type: 
  Country: None (occurrence: None)
  Receive Date: 20100921
  Receipt Date: 20100909
  Transmission Date: 20110219
  Serious: Yes (Hospitalization)
  Sender: FDA-Public Use
  Company Number: FR-SANOFI-AVENTIS-2010SA054041

PATIENT
  Age: 24 Year
  Sex: Male

DRUGS (9)
  1. LOVENOX [Suspect]
     Route: 058
     Dates: start: 20100810, end: 20100813
  2. VANCOMYCIN HCL [Suspect]
     Route: 042
     Dates: start: 20100728, end: 20100813
  3. VANCOMYCIN HCL [Suspect]
     Route: 042
     Dates: start: 20100728, end: 20100813
  4. FOSFOMYCIN [Concomitant]
     Route: 065
     Dates: start: 20100808, end: 20100808
  5. FOSFOMYCIN [Concomitant]
     Route: 065
     Dates: start: 20100808, end: 20100808
  6. UNFRACTIONATED HEPARIN [Concomitant]
     Dates: end: 20100810
  7. HYPNOVEL [Concomitant]
     Indication: SEDATION
     Dates: start: 20100713
  8. MORPHINE [Concomitant]
     Indication: PAIN
     Dates: start: 20100713
  9. FLAMMAZINE [Concomitant]
     Route: 003
     Dates: start: 20100713

REACTIONS (1)
  - ACUTE GENERALISED EXANTHEMATOUS PUSTULOSIS [None]
